FAERS Safety Report 11794370 (Version 2)
Quarter: 2015Q4

REPORT INFORMATION
  Report Type: Report from Study
  Country: US (occurrence: US)
  Receive Date: 20151202
  Receipt Date: 20151214
  Transmission Date: 20160305
  Serious: Yes (Death, Hospitalization)
  Sender: FDA-Public Use
  Company Number: US-CELGENE-USA-2015116124

PATIENT
  Age: 73 Year
  Sex: Male
  Weight: 104.3 kg

DRUGS (1)
  1. VIDAZA [Suspect]
     Active Substance: AZACITIDINE
     Indication: MYELODYSPLASTIC SYNDROME
     Dosage: 180 MILLIGRAM
     Route: 065
     Dates: start: 20151021, end: 20151027

REACTIONS (2)
  - Pneumonia [Fatal]
  - Sepsis [Fatal]

NARRATIVE: CASE EVENT DATE: 20151109
